FAERS Safety Report 8529347-4 (Version None)
Quarter: 2012Q2

REPORT INFORMATION
  Report Type: 
  Country: None (occurrence: None)
  Receive Date: 20120406
  Receipt Date: 20110404
  Transmission Date: 20120825
  Serious: Yes (Other)
  Sender: FDA-Public Use
  Company Number: US-2011-10216

PATIENT
  Age: 31 Year
  Sex: Male

DRUGS (6)
  1. TACROLIMUS [Concomitant]
  2. METHOTREXATE SODIUM [Concomitant]
  3. FILGRASTIM (FLIGRASTIM) [Concomitant]
  4. PHENYTOIN [Concomitant]
  5. FLUDARABINE PHOSPHATE [Concomitant]
  6. BUSULFEX [Suspect]
     Indication: STEM CELL TRANSPLANT

REACTIONS (1)
  - ACUTE GRAFT VERSUS HOST DISEASE [None]
